FAERS Safety Report 13451946 (Version 1)
Quarter: 2017Q2

REPORT INFORMATION
  Report Type: Spontaneous
  Country: US (occurrence: US)
  Receive Date: 20170417
  Receipt Date: 20170417
  Transmission Date: 20170830
  Serious: No
  Sender: FDA-Public Use
  Company Number: None

PATIENT
  Age: 53 Year
  Sex: Female

DRUGS (1)
  1. IBRANCE [Suspect]
     Active Substance: PALBOCICLIB
     Indication: BREAST CANCER

REACTIONS (8)
  - Nausea [None]
  - Vomiting [None]
  - Decreased appetite [None]
  - Fatigue [None]
  - Stomatitis [None]
  - Hot flush [None]
  - Hyperhidrosis [None]
  - Depression [None]

NARRATIVE: CASE EVENT DATE: 20170101
